FAERS Safety Report 25167707 (Version 2)
Quarter: 2025Q3

REPORT INFORMATION
  Report Type: Spontaneous
  Country: IN (occurrence: IN)
  Receive Date: 20250407
  Receipt Date: 20250803
  Transmission Date: 20251021
  Serious: Yes (Other)
  Sender: ALEXION PHARMACEUTICALS
  Company Number: IN-ASTRAZENECA-202503IND028806IN

PATIENT
  Sex: Male

DRUGS (2)
  1. SYMBICORT [Suspect]
     Active Substance: BUDESONIDE\FORMOTEROL FUMARATE DIHYDRATE
     Indication: Asthma
     Route: 065
  2. XOLAIR [Concomitant]
     Active Substance: OMALIZUMAB
     Route: 065

REACTIONS (8)
  - Visual impairment [Unknown]
  - Hypertension [Unknown]
  - Dizziness [Unknown]
  - Memory impairment [Unknown]
  - Disturbance in attention [Unknown]
  - Blindness [Unknown]
  - Macular degeneration [Unknown]
  - Renal failure [Unknown]
